FAERS Safety Report 24108647 (Version 1)
Quarter: 2024Q3

REPORT INFORMATION
  Report Type: Report from Study
  Country: GB (occurrence: None)
  Receive Date: 20240718
  Receipt Date: 20240718
  Transmission Date: 20241017
  Serious: Yes (Hospitalization)
  Sender: ASTRAZENECA
  Company Number: 2020SF15645

PATIENT
  Sex: Female

DRUGS (1)
  1. FASENRA [Suspect]
     Active Substance: BENRALIZUMAB
     Indication: Ill-defined disorder
     Dosage: 30.0MG UNKNOWN
     Route: 058

REACTIONS (2)
  - Sepsis [Unknown]
  - Kidney infection [Unknown]
